FAERS Safety Report 7353803-8 (Version None)
Quarter: 2011Q1

REPORT INFORMATION
  Report Type: 
  Country: None (occurrence: None)
  Receive Date: 20110315
  Receipt Date: 20101104
  Transmission Date: 20110831
  Serious: No
  Sender: FDA-Public Use
  Company Number: US-BAYER-201023442BCC

PATIENT
  Sex: Female
  Weight: 45.455 kg

DRUGS (7)
  1. CADUET [Concomitant]
  2. LOSARTAN [Concomitant]
  3. VENLAFAXINE [Concomitant]
  4. ASPIRIN [Concomitant]
  5. ALENDRONATE SODIUM [Concomitant]
  6. STOOL SOFTENER [Concomitant]
  7. ALEVE [Suspect]
     Indication: CAROTID ARTERY DISEASE
     Dosage: BOTTLE COUNT 200CT

REACTIONS (1)
  - NO ADVERSE EVENT [None]
